FAERS Safety Report 13426685 (Version 5)
Quarter: 2017Q2

REPORT INFORMATION
  Report Type: Report from Study
  Country: FR (occurrence: FR)
  Receive Date: 20170411
  Receipt Date: 20170630
  Transmission Date: 20170830
  Serious: Yes (Other)
  Sender: FDA-Public Use
  Company Number: FR-ROCHE-1898545

PATIENT
  Age: 54 Year
  Sex: Male
  Weight: 65 kg

DRUGS (108)
  1. XYZALL [Concomitant]
     Active Substance: LEVOCETIRIZINE DIHYDROCHLORIDE
     Route: 065
     Dates: start: 20160830, end: 20160830
  2. XYZALL [Concomitant]
     Active Substance: LEVOCETIRIZINE DIHYDROCHLORIDE
     Route: 065
     Dates: start: 20160913, end: 20160913
  3. POLARAMINE [Concomitant]
     Active Substance: DEXCHLORPHENIRAMINE MALEATE
     Route: 065
     Dates: start: 20131125, end: 20131125
  4. METHYLPREDNISOLONE. [Concomitant]
     Active Substance: METHYLPREDNISOLONE
     Route: 065
     Dates: start: 20141028, end: 20141028
  5. PARACETAMOL [Concomitant]
     Active Substance: ACETAMINOPHEN
     Route: 065
     Dates: start: 20131125, end: 20131125
  6. PARACETAMOL [Concomitant]
     Active Substance: ACETAMINOPHEN
     Route: 065
     Dates: start: 20160315, end: 20160315
  7. FAMPYRA [Concomitant]
     Active Substance: DALFAMPRIDINE
     Dosage: INDICATION: WALK TROUBLES DUE TO MS
     Route: 065
     Dates: start: 20130930, end: 20131125
  8. LIORESAL [Concomitant]
     Active Substance: BACLOFEN
     Indication: MUSCLE SPASTICITY
     Dosage: INDICATION: SPASTICITY DUE TO MS
     Route: 065
     Dates: start: 20130108, end: 20130115
  9. OCRELIZUMAB [Suspect]
     Active Substance: OCRELIZUMAB
     Dosage: ADMINISTERED ON DAYS 1 AND 15 OF EVERY 24 WEEK CYCLE.
     Route: 042
     Dates: start: 20150428, end: 20150428
  10. OCRELIZUMAB [Suspect]
     Active Substance: OCRELIZUMAB
     Dosage: ADMINISTERED ON DAYS 1 AND 15 OF THE FIRST 24 WEEK CYCLE, THEN ON DAY 1 OF EACH SUBSEQUENT CYCLE (HO
     Route: 042
     Dates: start: 20170214, end: 20170214
  11. AERIUS [Concomitant]
     Active Substance: DESLORATADINE
     Route: 065
     Dates: start: 20150428, end: 20150428
  12. DOLIPRANE [Concomitant]
     Active Substance: ACETAMINOPHEN
     Indication: PREMEDICATION
     Route: 065
     Dates: start: 20160830, end: 20160830
  13. DOLIPRANE [Concomitant]
     Active Substance: ACETAMINOPHEN
     Route: 065
     Dates: start: 20160913, end: 20160913
  14. XYZALL [Concomitant]
     Active Substance: LEVOCETIRIZINE DIHYDROCHLORIDE
     Indication: PREMEDICATION
     Route: 065
     Dates: start: 20151006, end: 20151006
  15. POLARAMINE [Concomitant]
     Active Substance: DEXCHLORPHENIRAMINE MALEATE
     Route: 065
     Dates: start: 20130107, end: 20130107
  16. POLARAMINE [Concomitant]
     Active Substance: DEXCHLORPHENIRAMINE MALEATE
     Route: 065
     Dates: start: 20130624, end: 20130624
  17. METHYLPREDNISOLONE. [Concomitant]
     Active Substance: METHYLPREDNISOLONE
     Route: 065
     Dates: start: 20141112, end: 20141112
  18. METHYLPREDNISOLONE. [Concomitant]
     Active Substance: METHYLPREDNISOLONE
     Route: 065
     Dates: start: 20160830, end: 20160830
  19. METHYLPREDNISOLONE. [Concomitant]
     Active Substance: METHYLPREDNISOLONE
     Route: 065
     Dates: start: 20160913, end: 20160913
  20. PARACETAMOL [Concomitant]
     Active Substance: ACETAMINOPHEN
     Route: 065
     Dates: start: 20140526, end: 20140526
  21. XATRAL [Concomitant]
     Active Substance: ALFUZOSIN
     Dosage: INDICATION: URINARY DISORDER DUE TO MS?10 MG IN MORNING
     Route: 065
     Dates: start: 20131209
  22. UVEDOSE [Concomitant]
     Active Substance: CHOLECALCIFEROL
     Route: 065
     Dates: start: 20160111, end: 20160211
  23. NEURONTIN [Concomitant]
     Active Substance: GABAPENTIN
     Indication: PAIN IN EXTREMITY
     Dosage: SECOND INDICATION: LOWER LIMB PAIN DUE TO MS
     Route: 065
     Dates: start: 20160316, end: 20160829
  24. OCRELIZUMAB [Suspect]
     Active Substance: OCRELIZUMAB
     Dosage: ADMINISTERED ON DAYS 1 AND 15 OF EVERY 24 WEEK CYCLE.
     Route: 042
     Dates: start: 20120723, end: 20120723
  25. OCRELIZUMAB [Suspect]
     Active Substance: OCRELIZUMAB
     Dosage: ADMINISTERED ON DAYS 1 AND 15 OF EVERY 24 WEEK CYCLE.
     Route: 042
     Dates: start: 20130610, end: 20130610
  26. OCRELIZUMAB [Suspect]
     Active Substance: OCRELIZUMAB
     Dosage: ADMINISTERED ON DAYS 1 AND 15 OF EVERY 24 WEEK CYCLE.
     Route: 042
     Dates: start: 20141028, end: 20141028
  27. LEVOCETIRIZINE [Concomitant]
     Active Substance: LEVOCETIRIZINE
     Indication: PREMEDICATION
     Route: 065
     Dates: start: 20170214, end: 20170214
  28. POLARAMINE [Concomitant]
     Active Substance: DEXCHLORPHENIRAMINE MALEATE
     Indication: PREMEDICATION
     Route: 065
     Dates: start: 20120709, end: 20120709
  29. METHYLPREDNISOLONE. [Concomitant]
     Active Substance: METHYLPREDNISOLONE
     Route: 065
     Dates: start: 20130107, end: 20130107
  30. METHYLPREDNISOLONE. [Concomitant]
     Active Substance: METHYLPREDNISOLONE
     Route: 065
     Dates: start: 20151020, end: 20151020
  31. PARACETAMOL [Concomitant]
     Active Substance: ACETAMINOPHEN
     Route: 065
     Dates: start: 20141028, end: 20141028
  32. OCRELIZUMAB [Suspect]
     Active Substance: OCRELIZUMAB
     Dosage: ADMINISTERED ON DAYS 1 AND 15 OF EVERY 24 WEEK CYCLE.
     Route: 042
     Dates: start: 20131125, end: 20131125
  33. OCRELIZUMAB [Suspect]
     Active Substance: OCRELIZUMAB
     Dosage: ADMINISTERED ON DAYS 1 AND 15 OF EVERY 24 WEEK CYCLE.
     Route: 042
     Dates: start: 20140526, end: 20140526
  34. OCRELIZUMAB [Suspect]
     Active Substance: OCRELIZUMAB
     Dosage: ADMINISTERED ON DAYS 1 AND 15 OF THE FIRST 24 WEEK CYCLE, THEN ON DAY 1 OF EACH SUBSEQUENT CYCLE (HO
     Route: 042
     Dates: start: 20160913, end: 20160913
  35. XYZALL [Concomitant]
     Active Substance: LEVOCETIRIZINE DIHYDROCHLORIDE
     Route: 065
     Dates: start: 20160315, end: 20160315
  36. XYZALL [Concomitant]
     Active Substance: LEVOCETIRIZINE DIHYDROCHLORIDE
     Route: 065
     Dates: start: 20160329, end: 20160329
  37. METHYLPREDNISOLONE. [Concomitant]
     Active Substance: METHYLPREDNISOLONE
     Route: 065
     Dates: start: 20120723, end: 20120723
  38. METHYLPREDNISOLONE. [Concomitant]
     Active Substance: METHYLPREDNISOLONE
     Route: 065
     Dates: start: 20130610, end: 20130610
  39. METHYLPREDNISOLONE. [Concomitant]
     Active Substance: METHYLPREDNISOLONE
     Route: 065
     Dates: start: 20140526, end: 20140526
  40. METHYLPREDNISOLONE. [Concomitant]
     Active Substance: METHYLPREDNISOLONE
     Route: 065
     Dates: start: 20150414, end: 20150414
  41. METHYLPREDNISOLONE. [Concomitant]
     Active Substance: METHYLPREDNISOLONE
     Route: 065
     Dates: start: 20151006, end: 20151006
  42. METHYLPREDNISOLONE. [Concomitant]
     Active Substance: METHYLPREDNISOLONE
     Route: 065
     Dates: start: 20160329, end: 20160329
  43. METHYLPREDNISOLONE. [Concomitant]
     Active Substance: METHYLPREDNISOLONE
     Route: 065
     Dates: start: 20170214, end: 20170214
  44. PARACETAMOL [Concomitant]
     Active Substance: ACETAMINOPHEN
     Route: 065
     Dates: start: 20170214, end: 20170214
  45. PARACETAMOL [Concomitant]
     Active Substance: ACETAMINOPHEN
     Route: 065
     Dates: start: 2007
  46. BIOCALYPTOL (FRANCE) [Concomitant]
     Indication: NASOPHARYNGITIS
     Dosage: 1 TABLESPOON
     Route: 065
     Dates: start: 20150929, end: 20151005
  47. DICLOFENAC [Concomitant]
     Active Substance: DICLOFENAC
     Indication: PAIN IN EXTREMITY
     Dosage: 1 OTHER, APPLICATION
     Route: 065
     Dates: start: 201507, end: 20151218
  48. OLMETEC [Concomitant]
     Active Substance: OLMESARTAN MEDOXOMIL
     Indication: HYPERTENSION
     Route: 065
     Dates: start: 20120927, end: 20130228
  49. LIORESAL [Concomitant]
     Active Substance: BACLOFEN
     Dosage: INDICATION: SPASTICITY DUE TO MS
     Route: 065
     Dates: start: 20141113
  50. BACLOFEN. [Concomitant]
     Active Substance: BACLOFEN
     Dosage: 10 MG IN MORNING AND MIDDAY AND 20 MG EVENING
     Route: 065
  51. OCRELIZUMAB [Suspect]
     Active Substance: OCRELIZUMAB
     Indication: PRIMARY PROGRESSIVE MULTIPLE SCLEROSIS
     Dosage: ADMINISTRATION ON 09/JUL/2012 STARTED AT 11:20.?ADMINISTERED ON DAYS 1 AND 15 OF EVERY 24 WEEK CYCLE
     Route: 042
     Dates: start: 20120709, end: 20120709
  52. OCRELIZUMAB [Suspect]
     Active Substance: OCRELIZUMAB
     Dosage: ADMINISTERED ON DAYS 1 AND 15 OF EVERY 24 WEEK CYCLE.
     Route: 042
     Dates: start: 20130121, end: 20130121
  53. OCRELIZUMAB [Suspect]
     Active Substance: OCRELIZUMAB
     Dosage: ADMINISTERED ON DAYS 1 AND 15 OF EVERY 24 WEEK CYCLE.
     Route: 042
     Dates: start: 20130624, end: 20130624
  54. OCRELIZUMAB [Suspect]
     Active Substance: OCRELIZUMAB
     Dosage: ADMINISTERED ON DAYS 1 AND 15 OF THE FIRST 24 WEEK CYCLE, THEN ON DAY 1 OF EACH SUBSEQUENT CYCLE (HO
     Route: 042
     Dates: start: 20160329, end: 20160329
  55. OCRELIZUMAB [Suspect]
     Active Substance: OCRELIZUMAB
     Dosage: ADMINISTERED ON DAYS 1 AND 15 OF THE FIRST 24 WEEK CYCLE, THEN ON DAY 1 OF EACH SUBSEQUENT CYCLE (HO
     Route: 042
     Dates: start: 20160830, end: 20160830
  56. AERIUS [Concomitant]
     Active Substance: DESLORATADINE
     Indication: PREMEDICATION
     Route: 065
     Dates: start: 20140512, end: 20140512
  57. METHYLPREDNISOLONE. [Concomitant]
     Active Substance: METHYLPREDNISOLONE
     Route: 065
     Dates: start: 20140512, end: 20140512
  58. PARACETAMOL [Concomitant]
     Active Substance: ACETAMINOPHEN
     Route: 065
     Dates: start: 20130624, end: 20130624
  59. PARACETAMOL [Concomitant]
     Active Substance: ACETAMINOPHEN
     Route: 065
     Dates: start: 20150414, end: 20150414
  60. STAGID [Concomitant]
     Active Substance: METFORMIN PAMOATE
     Dosage: 1/2 TABLET MORNING, 1 TABLET EVENING
     Route: 065
  61. LIORESAL [Concomitant]
     Active Substance: BACLOFEN
     Dosage: INDICATION: SPASTICITY DUE TO MS
     Route: 065
     Dates: start: 20130121, end: 20130128
  62. OCRELIZUMAB [Suspect]
     Active Substance: OCRELIZUMAB
     Dosage: ADMINISTERED ON DAYS 1 AND 15 OF EVERY 24 WEEK CYCLE.
     Route: 042
     Dates: start: 20131209, end: 20131209
  63. OCRELIZUMAB [Suspect]
     Active Substance: OCRELIZUMAB
     Indication: PRIMARY PROGRESSIVE MULTIPLE SCLEROSIS
     Dosage: ADMINISTRATION ON 15/MAR/2016 STARTED AT 12:05.?ADMINISTERED ON DAYS 1 AND 15 OF THE FIRST 24 WEEK C
     Route: 042
     Dates: start: 20160315, end: 20160315
  64. METHYLPREDNISOLONE. [Concomitant]
     Active Substance: METHYLPREDNISOLONE
     Indication: PREMEDICATION
     Route: 065
     Dates: start: 20120709, end: 20120709
  65. METHYLPREDNISOLONE. [Concomitant]
     Active Substance: METHYLPREDNISOLONE
     Route: 065
     Dates: start: 20150428, end: 20150428
  66. METHYLPREDNISOLONE. [Concomitant]
     Active Substance: METHYLPREDNISOLONE
     Route: 065
     Dates: start: 20160315, end: 20160315
  67. PARACETAMOL [Concomitant]
     Active Substance: ACETAMINOPHEN
     Route: 065
     Dates: start: 20130610, end: 20130610
  68. PARACETAMOL [Concomitant]
     Active Substance: ACETAMINOPHEN
     Route: 065
     Dates: start: 20131209, end: 20131209
  69. PARACETAMOL [Concomitant]
     Active Substance: ACETAMINOPHEN
     Route: 065
     Dates: start: 20150428, end: 20150428
  70. PARACETAMOL [Concomitant]
     Active Substance: ACETAMINOPHEN
     Route: 065
     Dates: start: 20151020, end: 20151020
  71. COOLMETEC [Concomitant]
     Active Substance: HYDROCHLOROTHIAZIDE\OLMESARTAN MEDOXOMIL
     Indication: HYPERTENSION
     Route: 065
     Dates: start: 20130301
  72. METEOSPASMYL [Concomitant]
     Active Substance: ALVERINE CITRATE\DIMETHICONE
     Indication: COLITIS
     Route: 065
     Dates: start: 20151005, end: 20160315
  73. STAGID [Concomitant]
     Active Substance: METFORMIN PAMOATE
     Indication: TYPE 2 DIABETES MELLITUS
     Route: 065
     Dates: start: 20160315
  74. NEURONTIN [Concomitant]
     Active Substance: GABAPENTIN
     Indication: PAIN IN EXTREMITY
     Route: 065
     Dates: start: 20160830
  75. LIORESAL [Concomitant]
     Active Substance: BACLOFEN
     Dosage: INDICATION: SPASTICITY DUE TO MS
     Route: 065
     Dates: start: 20130129, end: 20141112
  76. OCRELIZUMAB [Suspect]
     Active Substance: OCRELIZUMAB
     Dosage: ADMINISTERED ON DAYS 1 AND 15 OF EVERY 24 WEEK CYCLE.
     Route: 042
     Dates: start: 20140512, end: 20140512
  77. OCRELIZUMAB [Suspect]
     Active Substance: OCRELIZUMAB
     Dosage: ADMINISTERED ON DAYS 1 AND 15 OF EVERY 24 WEEK CYCLE.
     Route: 042
     Dates: start: 20151020, end: 20151020
  78. AERIUS [Concomitant]
     Active Substance: DESLORATADINE
     Route: 065
     Dates: start: 20140526, end: 20140526
  79. AERIUS [Concomitant]
     Active Substance: DESLORATADINE
     Route: 065
     Dates: start: 20141112, end: 20141112
  80. XYZALL [Concomitant]
     Active Substance: LEVOCETIRIZINE DIHYDROCHLORIDE
     Route: 065
     Dates: start: 20151020, end: 20151020
  81. POLARAMINE [Concomitant]
     Active Substance: DEXCHLORPHENIRAMINE MALEATE
     Route: 065
     Dates: start: 20120723, end: 20120723
  82. POLARAMINE [Concomitant]
     Active Substance: DEXCHLORPHENIRAMINE MALEATE
     Route: 065
     Dates: start: 20130121, end: 20130121
  83. POLARAMINE [Concomitant]
     Active Substance: DEXCHLORPHENIRAMINE MALEATE
     Route: 065
     Dates: start: 20130610, end: 20130610
  84. METHYLPREDNISOLONE. [Concomitant]
     Active Substance: METHYLPREDNISOLONE
     Route: 065
     Dates: start: 20130121, end: 20130121
  85. METHYLPREDNISOLONE. [Concomitant]
     Active Substance: METHYLPREDNISOLONE
     Route: 065
     Dates: start: 20131125, end: 20131125
  86. PARACETAMOL [Concomitant]
     Active Substance: ACETAMINOPHEN
     Indication: PAIN IN EXTREMITY
     Route: 065
     Dates: start: 20120723, end: 20120723
  87. PARACETAMOL [Concomitant]
     Active Substance: ACETAMINOPHEN
     Indication: RIB FRACTURE
     Route: 065
     Dates: start: 20130107, end: 20130107
  88. PARACETAMOL [Concomitant]
     Active Substance: ACETAMINOPHEN
     Route: 065
     Dates: start: 20130121, end: 20130121
  89. PARACETAMOL [Concomitant]
     Active Substance: ACETAMINOPHEN
     Route: 065
     Dates: start: 20151006, end: 20151006
  90. PARACETAMOL [Concomitant]
     Active Substance: ACETAMINOPHEN
     Route: 065
     Dates: start: 20160329, end: 20160329
  91. DAFALGAN [Concomitant]
     Active Substance: ACETAMINOPHEN
     Indication: NASOPHARYNGITIS
     Route: 065
     Dates: start: 20150929, end: 20151005
  92. IPERTEN [Concomitant]
     Active Substance: MANIDIPINE
     Indication: HYPERTENSION
     Route: 065
     Dates: start: 2007, end: 20120926
  93. LIORESAL [Concomitant]
     Active Substance: BACLOFEN
     Dosage: INDICATION: SPASTICITY DUE TO MS
     Route: 065
     Dates: start: 20130116, end: 20130120
  94. AERIUS [Concomitant]
     Active Substance: DESLORATADINE
     Route: 065
     Dates: start: 20141028, end: 20141028
  95. AERIUS [Concomitant]
     Active Substance: DESLORATADINE
     Route: 065
     Dates: start: 20150414, end: 20150414
  96. POLARAMINE [Concomitant]
     Active Substance: DEXCHLORPHENIRAMINE MALEATE
     Route: 065
     Dates: start: 20131209, end: 20131209
  97. METHYLPREDNISOLONE. [Concomitant]
     Active Substance: METHYLPREDNISOLONE
     Route: 065
     Dates: start: 20130624, end: 20130624
  98. METHYLPREDNISOLONE. [Concomitant]
     Active Substance: METHYLPREDNISOLONE
     Route: 065
     Dates: start: 20131209, end: 20131209
  99. PARACETAMOL [Concomitant]
     Active Substance: ACETAMINOPHEN
     Indication: PREMEDICATION
     Route: 065
     Dates: start: 20120709, end: 20120709
  100. PARACETAMOL [Concomitant]
     Active Substance: ACETAMINOPHEN
     Route: 065
     Dates: start: 20140512, end: 20140512
  101. PARACETAMOL [Concomitant]
     Active Substance: ACETAMINOPHEN
     Route: 065
     Dates: start: 20141112, end: 20141112
  102. PARACETAMOL [Concomitant]
     Active Substance: ACETAMINOPHEN
     Route: 065
     Dates: start: 20140708, end: 20141028
  103. IPERTEN [Concomitant]
     Active Substance: MANIDIPINE
     Route: 065
     Dates: start: 20120927, end: 20130228
  104. UVEDOSE [Concomitant]
     Active Substance: CHOLECALCIFEROL
     Indication: PROPHYLAXIS
     Dosage: SECOND INDICATION: LOW VITAMIN B
     Route: 065
     Dates: start: 20120614
  105. OCRELIZUMAB [Suspect]
     Active Substance: OCRELIZUMAB
     Dosage: ADMINISTERED ON DAYS 1 AND 15 OF EVERY 24 WEEK CYCLE.
     Route: 042
     Dates: start: 20130107, end: 20130107
  106. OCRELIZUMAB [Suspect]
     Active Substance: OCRELIZUMAB
     Dosage: ADMINISTERED ON DAYS 1 AND 15 OF EVERY 24 WEEK CYCLE.
     Route: 042
     Dates: start: 20141112, end: 20141112
  107. OCRELIZUMAB [Suspect]
     Active Substance: OCRELIZUMAB
     Dosage: ADMINISTERED ON DAYS 1 AND 15 OF EVERY 24 WEEK CYCLE.
     Route: 042
     Dates: start: 20150414, end: 20150414
  108. OCRELIZUMAB [Suspect]
     Active Substance: OCRELIZUMAB
     Dosage: ADMINISTERED ON DAYS 1 AND 15 OF EVERY 24 WEEK CYCLE.
     Route: 042
     Dates: start: 20151006, end: 20151006

REACTIONS (1)
  - Bundle branch block left [Recovered/Resolved]

NARRATIVE: CASE EVENT DATE: 20170214
